FAERS Safety Report 16366361 (Version 1)
Quarter: 2019Q2

REPORT INFORMATION
  Report Type: Spontaneous
  Country: US (occurrence: US)
  Receive Date: 20190529
  Receipt Date: 20190529
  Transmission Date: 20190711
  Serious: Yes (Other)
  Sender: FDA-Public Use
  Company Number: US-ROCHE-2325157

PATIENT
  Age: 40 Year
  Sex: Female

DRUGS (17)
  1. TOBRAMYCIN. [Suspect]
     Active Substance: TOBRAMYCIN
     Indication: CYSTIC FIBROSIS
     Route: 055
     Dates: start: 20170802
  2. LUPRON [Concomitant]
     Active Substance: LEUPROLIDE ACETATE
  3. NOVOLOG [Concomitant]
     Active Substance: INSULIN ASPART
  4. NORETHINDRONE [NORETHISTERONE] [Concomitant]
  5. TRINTELLIX [Concomitant]
     Active Substance: VORTIOXETINE HYDROBROMIDE
  6. SODIUM CHLORIDE. [Suspect]
     Active Substance: SODIUM CHLORIDE
     Indication: CYSTIC FIBROSIS
     Dosage: INHALE 1 VIAL EVERY 12 HOURS
     Route: 055
     Dates: start: 20160108
  7. ROPINIROLE. [Concomitant]
     Active Substance: ROPINIROLE
  8. VALACYCLOVIR HCL [Concomitant]
     Active Substance: VALACYCLOVIR HYDROCHLORIDE
  9. PULMOZYME [Suspect]
     Active Substance: DORNASE ALFA
     Indication: CYSTIC FIBROSIS
     Dosage: 1 VIAL
     Route: 055
     Dates: start: 20161108
  10. OXYCODONE [Concomitant]
     Active Substance: OXYCODONE
  11. AZTREONAM LYSINE [Suspect]
     Active Substance: AZTREONAM LYSINE
     Indication: CYSTIC FIBROSIS
     Route: 055
  12. LEVOTHYROXINE. [Concomitant]
     Active Substance: LEVOTHYROXINE
  13. LINZESS [Concomitant]
     Active Substance: LINACLOTIDE
  14. PERTZYE [Suspect]
     Active Substance: PANCRELIPASE AMYLASE\PANCRELIPASE LIPASE\PANCRELIPASE PROTEASE
     Indication: CYSTIC FIBROSIS
     Dosage: TAKE 8 TO 9 CAPSULES WITH MEALS AND 6 CAPSULES WITH SNACKS
     Route: 048
     Dates: start: 20160102
  15. ACYCLOVIR [ACICLOVIR] [Concomitant]
     Active Substance: ACYCLOVIR
  16. ELIQUIS [Concomitant]
     Active Substance: APIXABAN
  17. ESOMEPRAZOLE MAGNESIUM. [Concomitant]
     Active Substance: ESOMEPRAZOLE MAGNESIUM

REACTIONS (2)
  - Haemoptysis [Unknown]
  - Product dose omission [Unknown]
